FAERS Safety Report 7749769-9 (Version None)
Quarter: 2011Q3

REPORT INFORMATION
  Report Type: 
  Country: None (occurrence: None)
  Receive Date: 20110914
  Receipt Date: 20110901
  Transmission Date: 20111222
  Serious: Yes (Hospitalization)
  Sender: FDA-Public Use
  Company Number: FR-BRISTOL-MYERS SQUIBB COMPANY-16027245

PATIENT
  Age: 58 Year
  Sex: Male
  Weight: 78 kg

DRUGS (5)
  1. NEURONTIN [Concomitant]
     Indication: METASTASES TO CENTRAL NERVOUS SYSTEM
     Route: 048
     Dates: start: 20110310
  2. LEXOMIL [Concomitant]
     Dosage: ONE DOSE IN THE EVENING FOR LONG TERM
     Route: 048
  3. IPILIMUMAB [Suspect]
     Indication: METASTATIC MALIGNANT MELANOMA
     Dosage: NO OF INFUSION-4. RECENT INF ON 04APR2011, 27APR11 AND 19MAY11.
     Route: 042
     Dates: start: 20110314
  4. NEXIUM [Concomitant]
     Dosage: ONE DOSE IN THE EVENING FOR LONG TERM
     Route: 048
  5. PROZAC [Concomitant]
     Dosage: HALF A TABLET ONCE IN THE MORNING FOR LONG TERM .
     Route: 048

REACTIONS (3)
  - DIARRHOEA [None]
  - COLITIS ULCERATIVE [None]
  - FISTULA [None]
